FAERS Safety Report 11396594 (Version 2)
Quarter: 2015Q4

REPORT INFORMATION
  Report Type: Spontaneous
  Country: US (occurrence: US)
  Receive Date: 20150819
  Receipt Date: 20151007
  Transmission Date: 20160304
  Serious: Yes (Other)
  Sender: FDA-Public Use
  Company Number: US-PROCTER_AND_GAMBLE-CIO15034794

PATIENT
  Age: 51 Year
  Sex: Female

DRUGS (1)
  1. CREST CAVITY PROTECTION REGULAR [Suspect]
     Active Substance: SODIUM FLUORIDE
     Dosage: 1 APPLIC, 3 /DAY
     Route: 002
     Dates: start: 201503, end: 201505

REACTIONS (18)
  - Faecal incontinence [Unknown]
  - Hyperventilation [Unknown]
  - Condition aggravated [Not Recovered/Not Resolved]
  - Insomnia [Not Recovered/Not Resolved]
  - Paranoia [Not Recovered/Not Resolved]
  - Retching [Unknown]
  - Ear infection [Unknown]
  - Subcutaneous abscess [Unknown]
  - Vomiting [Unknown]
  - Hypoaesthesia [Not Recovered/Not Resolved]
  - Pharyngitis [Unknown]
  - Nausea [Unknown]
  - Eye haemorrhage [Not Recovered/Not Resolved]
  - Product physical issue [Unknown]
  - Urinary incontinence [Unknown]
  - Oral disorder [Unknown]
  - Phobia [Not Recovered/Not Resolved]
  - Malaise [Not Recovered/Not Resolved]

NARRATIVE: CASE EVENT DATE: 201505
